FAERS Safety Report 11916750 (Version 2)
Quarter: 2016Q2

REPORT INFORMATION
  Report Type: Report from Study
  Country: US (occurrence: US)
  Receive Date: 20160114
  Receipt Date: 20160413
  Transmission Date: 20160815
  Serious: Yes (Other)
  Sender: FDA-Public Use
  Company Number: US-JNJFOC-20151206274

PATIENT
  Sex: Female

DRUGS (2)
  1. REMICADE [Suspect]
     Active Substance: INFLIXIMAB
     Indication: PRODUCT USED FOR UNKNOWN INDICATION
     Dosage: Q 8 WEEKS AFTER INITAL DOSE
     Route: 042
     Dates: start: 201411
  2. PENTASA [Concomitant]
     Active Substance: MESALAMINE
     Indication: COLITIS ULCERATIVE
     Route: 065
     Dates: start: 20151202

REACTIONS (4)
  - Drug resistance [Unknown]
  - Arthralgia [Unknown]
  - Diarrhoea haemorrhagic [Unknown]
  - Drug ineffective [Unknown]
